FAERS Safety Report 6719866-5 (Version None)
Quarter: 2010Q2

REPORT INFORMATION
  Report Type: 
  Country: None (occurrence: None)
  Receive Date: 20100511
  Receipt Date: 20100504
  Transmission Date: 20101027
  Serious: Yes (Hospitalization, Other)
  Sender: FDA-Public Use
  Company Number: PHHO2010IL01394

PATIENT
  Sex: Female
  Weight: 17.9 kg

DRUGS (3)
  1. ACZ885 ACZ+ [Suspect]
     Indication: JUVENILE ARTHRITIS
     Dosage: UNK
     Dates: start: 20100111
  2. METHOTREXATE [Suspect]
  3. PREDNISONE [Suspect]

REACTIONS (13)
  - ABDOMINAL PAIN [None]
  - ASPARTATE AMINOTRANSFERASE INCREASED [None]
  - BACTERIAL INFECTION [None]
  - BLOOD FIBRINOGEN INCREASED [None]
  - FIBRIN D DIMER INCREASED [None]
  - HISTIOCYTOSIS HAEMATOPHAGIC [None]
  - LOBAR PNEUMONIA [None]
  - PLATELET COUNT DECREASED [None]
  - PLEURAL EFFUSION [None]
  - PNEUMONIA [None]
  - PYREXIA [None]
  - SERUM FERRITIN INCREASED [None]
  - THORACIC CAVITY DRAINAGE [None]
